FAERS Safety Report 5148603-3 (Version None)
Quarter: 2006Q4

REPORT INFORMATION
  Report Type: 
  Country: None (occurrence: None)
  Receive Date: 20061107
  Receipt Date: 20061029
  Transmission Date: 20070319
  Serious: Yes (Hospitalization)
  Sender: FDA-Public Use
  Company Number: 163-20785-06110044

PATIENT
  Age: 70 Year
  Sex: Female
  Weight: 78.8 kg

DRUGS (5)
  1. THALOMID [Suspect]
     Indication: MULTIPLE MYELOMA
     Dosage: 200 MG , 1 IN 1 D, ORAL
     Route: 048
     Dates: end: 20061026
  2. DEXAMETHASONE TAB [Suspect]
     Indication: DRUG USE FOR UNKNOWN INDICATION
     Dates: start: 20060101
  3. BLOOD PRESSURE MEDICATION (ANTIHYPERTENSIVES) [Concomitant]
  4. EPOGEN [Concomitant]
  5. FERROUS SULFATE TAB [Concomitant]

REACTIONS (1)
  - URINARY TRACT INFECTION [None]
